FAERS Safety Report 5343167-3 (Version None)
Quarter: 2007Q2

REPORT INFORMATION
  Report Type: 
  Country: None (occurrence: None)
  Receive Date: 20070416
  Receipt Date: 20070224
  Transmission Date: 20071010
  Serious: No
  Sender: FDA-Public Use
  Company Number: 2007SP000650

PATIENT
  Age: 75 Year
  Sex: Male
  Weight: 136.0791 kg

DRUGS (6)
  1. LUNESTA [Suspect]
     Indication: INSOMNIA
     Dosage: ORAL
     Route: 048
     Dates: start: 20070201, end: 20070201
  2. PRAZOSIN HCL [Concomitant]
  3. ATENOLOL [Concomitant]
  4. FAMOTIDINE [Concomitant]
  5. NAPROSYN [Concomitant]
  6. NORTRIPTYLINE HCL [Concomitant]

REACTIONS (3)
  - ABNORMAL DREAMS [None]
  - DRUG INEFFECTIVE [None]
  - INSOMNIA [None]
